FAERS Safety Report 15343400 (Version 1)
Quarter: 2018Q4

REPORT INFORMATION
  Report Type: Spontaneous
  Country: FR (occurrence: FR)
  Receive Date: 20180903
  Receipt Date: 20180903
  Transmission Date: 20190204
  Serious: Yes (Hospitalization)
  Sender: FDA-Public Use
  Company Number: FR-SUN PHARMACEUTICAL INDUSTRIES LTD-2018R1-183113

PATIENT
  Age: 16 Year
  Sex: Female

DRUGS (3)
  1. EUPHYTOSE [Suspect]
     Active Substance: HERBALS
     Indication: PRODUCT USED FOR UNKNOWN INDICATION
     Dosage: 500 MG IN TOTAL (10 CP X 50 MG)
     Route: 048
     Dates: start: 20180501, end: 20180501
  2. PARACETAMOL [Suspect]
     Active Substance: ACETAMINOPHEN
     Indication: PRODUCT USED FOR UNKNOWN INDICATION
     Dosage: 4 G IN TOTAL
     Route: 048
     Dates: start: 20180501, end: 20180501
  3. SPASMINE (HAWTHORN LEAF WITH FLOWER\VALERIAN) [Suspect]
     Active Substance: HAWTHORN LEAF WITH FLOWER\VALERIAN
     Indication: PRODUCT USED FOR UNKNOWN INDICATION
     Dosage: 480 IN TOTAL (4 CP X 120 MG)
     Route: 048
     Dates: start: 20180501, end: 20180501

REACTIONS (4)
  - Suicide attempt [Recovered/Resolved]
  - Headache [Recovered/Resolved]
  - Toxicity to various agents [Recovered/Resolved]
  - Abdominal pain [Recovered/Resolved]

NARRATIVE: CASE EVENT DATE: 20180501
